FAERS Safety Report 9224472 (Version 1)
Quarter: 2013Q1

REPORT INFORMATION
  Report Type: Spontaneous
  Country: BE (occurrence: None)
  Receive Date: 20120914
  Receipt Date: 20120914
  Transmission Date: 20140127
  Serious: Yes (Disabling)
  Sender: FDA-Public Use
  Company Number: JPI-P-022772

PATIENT
  Sex: Female

DRUGS (4)
  1. XYREM [Suspect]
     Indication: PRODUCT USED FOR UNKNOWN INDICATION
     Dosage: 2.5 GM, 2 IN 1 D)
     Route: 048
  2. FLUOXETINE [Concomitant]
  3. MODAFINIL [Concomitant]
  4. ETHINYLESTRADIOL AND DESOGESTREL [Concomitant]

REACTIONS (3)
  - Acute psychosis [None]
  - Confusional state [None]
  - Hallucination [None]
